FAERS Safety Report 8082650-7 (Version None)
Quarter: 2012Q1

REPORT INFORMATION
  Report Type: 
  Country: None (occurrence: None)
  Receive Date: 20120127
  Receipt Date: 20110224
  Transmission Date: 20120608
  Serious: No
  Sender: FDA-Public Use
  Company Number: US-ABBOTT-11P-163-0707483-00

PATIENT
  Age: 36 Year
  Sex: Female

DRUGS (11)
  1. HUMIRA [Suspect]
     Indication: ANKYLOSING SPONDYLITIS
     Dates: start: 20110219
  2. TRAMADOL HCL [Concomitant]
     Indication: PRODUCT USED FOR UNKNOWN INDICATION
  3. MECOZICAME [Concomitant]
     Indication: PRODUCT USED FOR UNKNOWN INDICATION
  4. SUCRALFATE [Concomitant]
     Indication: PROPHYLAXIS AGAINST GASTROINTESTINAL ULCER
  5. ALBUTEROL [Concomitant]
     Indication: ASTHMA
  6. TOPAMAX [Concomitant]
     Indication: HEADACHE
  7. CALCIUM WITH VITAMIN D [Concomitant]
     Indication: PRODUCT USED FOR UNKNOWN INDICATION
  8. OMEPRAZOLE [Concomitant]
     Indication: PRODUCT USED FOR UNKNOWN INDICATION
  9. FLEXERIL [Concomitant]
     Indication: MUSCLE SPASMS
     Dosage: AS NEEDED
  10. NORCO [Concomitant]
     Indication: INSOMNIA
     Dosage: 1-2 TABS
  11. IRON/FERROUS SULFATE [Concomitant]
     Indication: ANAEMIA

REACTIONS (2)
  - PRURITUS ALLERGIC [None]
  - HYPERSENSITIVITY [None]
